FAERS Safety Report 17070413 (Version 1)
Quarter: 2019Q4

REPORT INFORMATION
  Report Type: Spontaneous
  Country: US (occurrence: US)
  Receive Date: 20191122
  Receipt Date: 20191122
  Transmission Date: 20200122
  Serious: Yes (Hospitalization)
  Sender: FDA-Public Use
  Company Number: None

PATIENT
  Age: 15 Year
  Sex: Female

DRUGS (3)
  1. TADALAFIL. [Suspect]
     Active Substance: TADALAFIL
     Dates: start: 20190503
  2. TADALAFIL. [Suspect]
     Active Substance: TADALAFIL
     Indication: PORTAL HYPERTENSION
     Route: 048
     Dates: start: 20190503
  3. TADALAFIL. [Suspect]
     Active Substance: TADALAFIL
     Indication: PULMONARY HYPERTENSION
     Route: 048
     Dates: start: 20190503

REACTIONS (1)
  - Liver operation [None]

NARRATIVE: CASE EVENT DATE: 20191119
